FAERS Safety Report 5682916-1 (Version None)
Quarter: 2008Q1

REPORT INFORMATION
  Report Type: 
  Country: None (occurrence: None)
  Receive Date: 20080327
  Receipt Date: 20080317
  Transmission Date: 20080703
  Serious: Yes (Other)
  Sender: FDA-Public Use
  Company Number: US-JNJFOC-20080106788

PATIENT
  Sex: Male
  Weight: 109.77 kg

DRUGS (5)
  1. DURAGESIC-100 [Suspect]
     Indication: BACK DISORDER
     Route: 062
  2. KLONOPIN [Concomitant]
     Indication: ANXIETY
     Route: 048
  3. NEURONTIN [Concomitant]
     Indication: MOOD SWINGS
     Route: 048
  4. LUNESTA [Concomitant]
     Indication: SLEEP DISORDER
     Route: 048
  5. UROXATRAL [Concomitant]
     Indication: POLLAKIURIA
     Route: 048

REACTIONS (7)
  - BACK DISORDER [None]
  - BLOOD POTASSIUM DECREASED [None]
  - BREAKTHROUGH PAIN [None]
  - DEPRESSION [None]
  - DRUG ADMINISTERED AT INAPPROPRIATE SITE [None]
  - MUSCLE SPASMS [None]
  - WRONG TECHNIQUE IN DRUG USAGE PROCESS [None]
